FAERS Safety Report 6876896-0 (Version None)
Quarter: 2010Q3

REPORT INFORMATION
  Report Type: 
  Country: None (occurrence: None)
  Receive Date: 20100727
  Receipt Date: 20100713
  Transmission Date: 20110219
  Serious: Yes (Hospitalization)
  Sender: FDA-Public Use
  Company Number: US-GENZYME-POMP-1001005

PATIENT
  Sex: Female

DRUGS (1)
  1. MYOZYME [Suspect]
     Indication: GLYCOGEN STORAGE DISEASE TYPE II
     Dosage: UNK

REACTIONS (7)
  - BODY TEMPERATURE INCREASED [None]
  - HEART RATE INCREASED [None]
  - HYPERHIDROSIS [None]
  - LETHARGY [None]
  - PALLOR [None]
  - PULMONARY OEDEMA [None]
  - RASH [None]
